FAERS Safety Report 4587736-7 (Version None)
Quarter: 2005Q1

REPORT INFORMATION
  Report Type: 
  Country: None (occurrence: None)
  Receive Date: 20050125
  Receipt Date: 20041101
  Transmission Date: 20050727
  Serious: No
  Sender: FDA-Public Use
  Company Number: USA030537520

PATIENT
  Age: 67 Year
  Sex: Female

DRUGS (2)
  1. FORTEO [Suspect]
     Indication: OSTEOPOROSIS
     Dosage: 20 UG/DAY
     Dates: start: 20030501
  2. EVISTA [Suspect]
     Indication: OSTEOPOROSIS

REACTIONS (4)
  - DRUG INEFFECTIVE [None]
  - FATIGUE [None]
  - HEART RATE INCREASED [None]
  - PALPITATIONS [None]
